FAERS Safety Report 7462886-6 (Version None)
Quarter: 2011Q2

REPORT INFORMATION
  Report Type: 
  Country: None (occurrence: None)
  Receive Date: 20110506
  Receipt Date: 20110324
  Transmission Date: 20111010
  Serious: Yes (Other)
  Sender: FDA-Public Use
  Company Number: US-BAYER-2010-004447

PATIENT
  Age: 25 Year
  Sex: Female
  Weight: 58.957 kg

DRUGS (7)
  1. YAZ [Suspect]
     Indication: CONTRACEPTION
     Dosage: UNK
     Dates: start: 20060601, end: 20090801
  2. FLEXERIL [Concomitant]
     Dosage: 10 MG, UNK
     Dates: start: 20090401
  3. DIFLUCAN [Concomitant]
     Dosage: 100 MG, UNK
     Dates: start: 20090401
  4. YASMIN [Suspect]
     Indication: CONTRACEPTION
     Dosage: UNK
     Dates: start: 20060601, end: 20090801
  5. MOTRIN [Concomitant]
     Dosage: 800 MG, UNK
     Dates: start: 20090401
  6. IBUPROFEN [Concomitant]
     Indication: BACK PAIN
     Dosage: UNK
     Dates: start: 20090401
  7. ZOVIRAX [Concomitant]
     Indication: HERPES SIMPLEX
     Dosage: UNK
     Dates: start: 20070101

REACTIONS (2)
  - CHOLELITHIASIS [None]
  - CHOLECYSTITIS [None]
